FAERS Safety Report 20019094 (Version 2)
Quarter: 2021Q4

REPORT INFORMATION
  Report Type: Spontaneous
  Country: BG (occurrence: BG)
  Receive Date: 20211101
  Receipt Date: 20211215
  Transmission Date: 20220303
  Serious: Yes (Life-Threatening, Hospitalization, Disabling, Other)
  Sender: FDA-Public Use
  Company Number: BG-BBM-202101271

PATIENT
  Age: 3 Month
  Sex: Female

DRUGS (10)
  1. UNASYN [Suspect]
     Active Substance: AMPICILLIN SODIUM\SULBACTAM SODIUM
     Dosage: UNK
  2. FLUCONAZOLE [Suspect]
     Active Substance: FLUCONAZOLE
     Dosage: UNK
  3. CEFTRIAXONE [Suspect]
     Active Substance: CEFTRIAXONE
     Dosage: UNK
  4. AMIKACIN [Suspect]
     Active Substance: AMIKACIN
     Dosage: UNK
  5. VANCOMYCIN [Suspect]
     Active Substance: VANCOMYCIN
     Dosage: UNK
  6. TEICOPLANIN [Suspect]
     Active Substance: TEICOPLANIN
     Dosage: UNK
  7. CIPROFLOXACIN [Suspect]
     Active Substance: CIPROFLOXACIN
     Dosage: UNK
  8. SALIN [Concomitant]
     Dosage: UNK
  9. DEXTROSE [Concomitant]
     Active Substance: DEXTROSE
     Dosage: UNK
  10. PHENOBARBITAL [Concomitant]
     Active Substance: PHENOBARBITAL
     Dosage: UNK

REACTIONS (1)
  - Fungal endocarditis [Recovered/Resolved with Sequelae]
